FAERS Safety Report 7225893-4 (Version None)
Quarter: 2011Q1

REPORT INFORMATION
  Report Type: 
  Country: None (occurrence: None)
  Receive Date: 20110113
  Receipt Date: 20110104
  Transmission Date: 20110831
  Serious: Yes (Disabling)
  Sender: FDA-Public Use
  Company Number: EC-GENENTECH-312098

PATIENT
  Sex: Female
  Weight: 63 kg

DRUGS (2)
  1. MABTHERA [Suspect]
     Indication: RHEUMATOID ARTHRITIS
     Dosage: UNK
     Route: 042
     Dates: start: 20100701
  2. MABTHERA [Suspect]
     Dosage: UNK
     Route: 042
     Dates: start: 20101224

REACTIONS (1)
  - VASCULITIS [None]
